FAERS Safety Report 8238191-7 (Version None)
Quarter: 2012Q1

REPORT INFORMATION
  Report Type: 
  Country: None (occurrence: None)
  Receive Date: 20120327
  Receipt Date: 20120315
  Transmission Date: 20120608
  Serious: Yes (Other)
  Sender: FDA-Public Use
  Company Number: CHPA2010CA09418

PATIENT
  Age: 66 Year
  Sex: Female

DRUGS (6)
  1. LORAZEPAM [Concomitant]
     Dosage: 1 PILL, BID
     Route: 048
  2. TEMAZEPAM [Concomitant]
     Indication: INSOMNIA
     Dosage: UNK
  3. MS CONTIN [Concomitant]
     Indication: PAIN
     Dosage: 1 PILL, TID
     Route: 048
  4. VOLTAREN [Suspect]
     Dosage: UNK, 2-3 TIMES A DAY
     Route: 061
     Dates: start: 20090101
  5. VOLTAREN [Suspect]
     Dosage: UNK, 3 TIMES A DAY PRN
     Route: 061
  6. VOLTAREN [Suspect]
     Indication: MYALGIA
     Dosage: UNK, QD
     Route: 061
     Dates: start: 20120305

REACTIONS (15)
  - FALL [None]
  - HIP FRACTURE [None]
  - RIB FRACTURE [None]
  - CHOLELITHIASIS [None]
  - UPPER LIMB FRACTURE [None]
  - ABDOMINAL PAIN UPPER [None]
  - PANCREATOLITHIASIS [None]
  - HUMERUS FRACTURE [None]
  - NEPHROLITHIASIS [None]
  - OFF LABEL USE [None]
  - HAEMATOCHEZIA [None]
  - CARPAL TUNNEL SYNDROME [None]
  - INTENTIONAL DRUG MISUSE [None]
  - SURGERY [None]
  - PATELLA FRACTURE [None]
